FAERS Safety Report 21783705 (Version 5)
Quarter: 2024Q1

REPORT INFORMATION
  Report Type: Spontaneous
  Country: US (occurrence: US)
  Receive Date: 20221227
  Receipt Date: 20240320
  Transmission Date: 20240410
  Serious: Yes (Other)
  Sender: FDA-Public Use
  Company Number: US-PFIZER INC-PV202200129256

PATIENT
  Age: 74 Year
  Sex: Female
  Weight: 73.016 kg

DRUGS (2)
  1. IBRANCE [Suspect]
     Active Substance: PALBOCICLIB
     Indication: Breast cancer stage IV
     Dosage: 125 MG
  2. IBRANCE [Suspect]
     Active Substance: PALBOCICLIB
     Dosage: 1 TABLET ONCE DAILY WITH OR WITHOUT FOOD ON DAYS 1-21 EVERY 28 DAY CYCLE. 125 MG 21/28
     Route: 048
     Dates: start: 201803

REACTIONS (3)
  - Blood pressure increased [Unknown]
  - Illness [Unknown]
  - COVID-19 [Unknown]

NARRATIVE: CASE EVENT DATE: 20231221
